FAERS Safety Report 14834587 (Version 1)
Quarter: 2018Q2

REPORT INFORMATION
  Report Type: Spontaneous
  Country: FR (occurrence: FR)
  Receive Date: 20180501
  Receipt Date: 20180501
  Transmission Date: 20180711
  Serious: Yes (Hospitalization, Other)
  Sender: FDA-Public Use
  Company Number: FR-MYLANLABS-2018M1027571

PATIENT
  Age: 38 Year
  Sex: Female

DRUGS (7)
  1. TEGRETOL [Interacting]
     Active Substance: CARBAMAZEPINE
     Indication: PRODUCT USED FOR UNKNOWN INDICATION
     Dosage: 400 MG, TID
     Route: 048
  2. ABILIFY MAINTENA [Interacting]
     Active Substance: ARIPIPRAZOLE
     Indication: PRODUCT USED FOR UNKNOWN INDICATION
     Dosage: 400 MG, ONCE
     Route: 030
     Dates: start: 20150505
  3. ARIPIPRAZOLE. [Suspect]
     Active Substance: ARIPIPRAZOLE
     Dosage: 30 MG, BID
     Route: 048
     Dates: start: 20150330
  4. CARBAMAZEPINE. [Interacting]
     Active Substance: CARBAMAZEPINE
     Dosage: 400 MG, TID
     Route: 048
  5. TEGRETOL [Interacting]
     Active Substance: CARBAMAZEPINE
     Dosage: 400 MG, BID
     Route: 048
  6. ARIPIPRAZOLE. [Suspect]
     Active Substance: ARIPIPRAZOLE
     Indication: PRODUCT USED FOR UNKNOWN INDICATION
     Dosage: 30 MG, QD
     Route: 048
  7. CARBAMAZEPINE. [Suspect]
     Active Substance: CARBAMAZEPINE
     Indication: PRODUCT USED FOR UNKNOWN INDICATION
     Dosage: 400 MG, BID
     Route: 048

REACTIONS (2)
  - Inhibitory drug interaction [Unknown]
  - Overdose [Unknown]

NARRATIVE: CASE EVENT DATE: 201505
